FAERS Safety Report 11270464 (Version 1)
Quarter: 2015Q3

REPORT INFORMATION
  Report Type: Spontaneous
  Country: US (occurrence: US)
  Receive Date: 20150714
  Receipt Date: 20150714
  Transmission Date: 20151125
  Serious: No
  Sender: FDA-Public Use
  Company Number: US-ASTRAZENECA-2015SE65650

PATIENT
  Sex: Female
  Weight: 61.2 kg

DRUGS (7)
  1. LEVOXYL [Concomitant]
     Active Substance: LEVOTHYROXINE SODIUM
     Indication: THYROID DISORDER
  2. ESTRADIOL. [Concomitant]
     Active Substance: ESTRADIOL
  3. BYDUREON [Suspect]
     Active Substance: EXENATIDE
     Indication: BLOOD GLUCOSE DECREASED
     Route: 058
  4. SPIRONOLACTONE. [Concomitant]
     Active Substance: SPIRONOLACTONE
  5. DEXILANT DR [Concomitant]
  6. CITALOPRAM [Concomitant]
     Active Substance: CITALOPRAM HYDROBROMIDE
  7. LINZESS [Concomitant]
     Active Substance: LINACLOTIDE

REACTIONS (4)
  - Arthritis [Unknown]
  - Injection site pain [Unknown]
  - Injection site mass [Unknown]
  - Injection site haemorrhage [Unknown]
